FAERS Safety Report 10662842 (Version 2)
Quarter: 2014Q4

REPORT INFORMATION
  Report Type: Spontaneous
  Country: US (occurrence: US)
  Receive Date: 20141218
  Receipt Date: 20141218
  Transmission Date: 20150529
  Serious: No
  Sender: FDA-Public Use
  Company Number: US-GALDERMA-US14001578

PATIENT
  Sex: Female

DRUGS (15)
  1. ASPIRIN. [Concomitant]
     Active Substance: ASPIRIN
     Indication: PROPHYLAXIS
     Dosage: 81 MG
     Route: 048
     Dates: start: 2000
  2. TEKTURNA [Concomitant]
     Active Substance: ALISKIREN HEMIFUMARATE
     Indication: HYPERTENSION
     Dosage: 300 MG
     Route: 048
     Dates: start: 2000
  3. VITAMIN D [Concomitant]
     Active Substance: CHOLECALCIFEROL
     Indication: VITAMIN D DEFICIENCY
     Dosage: 1000 UNITS
     Route: 048
     Dates: start: 2010
  4. PREVACID [Concomitant]
     Active Substance: LANSOPRAZOLE
     Indication: GASTROOESOPHAGEAL REFLUX DISEASE
     Dosage: 15 MG
     Route: 048
     Dates: start: 2011
  5. ELIZABETH ARDEN FLAWLESS FINISH MOUSSE MAKEUP [Concomitant]
     Route: 061
     Dates: start: 1998
  6. OLAY WET CLEANSING TOWELETTES SENSITIVE [Concomitant]
     Route: 061
     Dates: start: 2014
  7. HUMALIN N [Concomitant]
     Indication: DIABETES MELLITUS
     Dosage: 14 UNITS
     Route: 058
     Dates: start: 2014
  8. HYOSCYAMINE [Concomitant]
     Active Substance: HYOSCYAMINE
     Indication: IRRITABLE BOWEL SYNDROME
     Dosage: 0.125 MG
     Route: 048
     Dates: start: 1992
  9. METROGEL [Suspect]
     Active Substance: METRONIDAZOLE
     Indication: ROSACEA
     Route: 061
     Dates: end: 201403
  10. COENZYME Q10 [Concomitant]
     Active Substance: UBIDECARENONE
     Dosage: 100 MG
     Route: 048
     Dates: start: 2004
  11. CRESTOR [Concomitant]
     Active Substance: ROSUVASTATIN CALCIUM
     Dosage: 5 MG
     Route: 048
  12. BIOTIN [Concomitant]
     Active Substance: BIOTIN
     Indication: SUPPLEMENTATION THERAPY
     Dosage: 5 MCG
     Route: 048
     Dates: start: 2009
  13. HUMALOG 75-25 [Concomitant]
     Indication: DIABETES MELLITUS
     Dosage: 26 IU
     Route: 058
     Dates: start: 2014
  14. SYNTHROID [Concomitant]
     Active Substance: LEVOTHYROXINE SODIUM
     Indication: HYPOTHYROIDISM
     Dosage: 100 MCG
     Route: 048
     Dates: start: 1980
  15. NEOVA HERBAL WASH [Concomitant]
     Route: 061
     Dates: start: 2014

REACTIONS (1)
  - Drug ineffective [Unknown]
